FAERS Safety Report 17093454 (Version 3)
Quarter: 2020Q2

REPORT INFORMATION
  Report Type: Report from Study
  Country: CA (occurrence: CA)
  Receive Date: 20191129
  Receipt Date: 20200401
  Transmission Date: 20200713
  Serious: Yes (Life-Threatening)
  Sender: FDA-Public Use
  Company Number: NVSC2019CA051445

PATIENT
  Age: 69 Year
  Sex: Male

DRUGS (2)
  1. TAMSULOSIN [Concomitant]
     Active Substance: TAMSULOSIN
     Indication: PROSTATOMEGALY
     Dosage: UNK UNK, QD
     Route: 065
     Dates: start: 2014, end: 201902
  2. COSENTYX [Suspect]
     Active Substance: SECUKINUMAB
     Indication: PRODUCT USED FOR UNKNOWN INDICATION
     Dosage: 300 MG, Q4W
     Route: 058
     Dates: start: 20180102, end: 20191031

REACTIONS (3)
  - Benign prostatic hyperplasia [Recovered/Resolved with Sequelae]
  - Prostate cancer [Recovered/Resolved with Sequelae]
  - Prostatic specific antigen increased [Recovered/Resolved with Sequelae]

NARRATIVE: CASE EVENT DATE: 201902
